FAERS Safety Report 8449034-0 (Version None)
Quarter: 2012Q2

REPORT INFORMATION
  Report Type: 
  Country: None (occurrence: None)
  Receive Date: 20120611
  Receipt Date: 20120529
  Transmission Date: 20120825
  Serious: Yes (Disabling)
  Sender: FDA-Public Use
  Company Number: 1272291

PATIENT
  Age: 72 Year
  Sex: Male

DRUGS (8)
  1. NORMASE [Concomitant]
  2. LEVOFLOXACIN [Concomitant]
  3. ALLOPURINOL [Concomitant]
  4. MYCOSTATIN [Concomitant]
  5. CYTARABINE [Suspect]
     Indication: ACUTE MYELOID LEUKAEMIA
     Dosage: 200 MG MILLIGRAM(S), INTRAVENOUS
     Route: 042
     Dates: start: 20120224, end: 20120301
  6. IDARUBICIN HYDROCHLORIDE [Suspect]
     Indication: ACUTE MYELOID LEUKAEMIA
     Dosage: 24 MG, CYCLIC, INTRAVENOUS
     Route: 042
     Dates: start: 20120224, end: 20120228
  7. LASIX [Concomitant]
  8. ZOFRAN [Concomitant]

REACTIONS (9)
  - RENAL FAILURE [None]
  - PERICARDIAL EFFUSION [None]
  - TUMOUR LYSIS SYNDROME [None]
  - FEBRILE BONE MARROW APLASIA [None]
  - RESPIRATORY FAILURE [None]
  - HAEMATURIA [None]
  - PLEURAL EFFUSION [None]
  - SINUS TACHYCARDIA [None]
  - TROPONIN INCREASED [None]
